FAERS Safety Report 5850020-5 (Version None)
Quarter: 2008Q3

REPORT INFORMATION
  Report Type: 
  Country: None (occurrence: None)
  Receive Date: 20080731
  Receipt Date: 20080403
  Transmission Date: 20090109
  Serious: No
  Sender: FDA-Public Use
  Company Number: US200804001783

PATIENT
  Sex: Female

DRUGS (1)
  1. BYETTA [Suspect]

REACTIONS (4)
  - BLOOD GLUCOSE DECREASED [None]
  - GAIT DISTURBANCE [None]
  - MALAISE [None]
  - TREMOR [None]
